FAERS Safety Report 8156082-7 (Version None)
Quarter: 2012Q1

REPORT INFORMATION
  Report Type: 
  Country: None (occurrence: None)
  Receive Date: 20120221
  Receipt Date: 20120221
  Transmission Date: 20120608
  Serious: Yes (Hospitalization)
  Sender: FDA-Public Use
  Company Number: None

PATIENT
  Sex: Female
  Weight: 29.3 kg

DRUGS (6)
  1. IRINOTECAN HCL [Suspect]
     Indication: NEUROBLASTOMA
     Dosage: 44 MG 5X EVERY 21 DAYS IV
     Route: 042
     Dates: start: 20110718
  2. VELCADE [Suspect]
     Indication: NEUROBLASTOMA
     Dosage: 1.2 MG 4X EVERY 21 DAYS IV
     Route: 042
     Dates: start: 20110718
  3. BACTRIM [Concomitant]
  4. CEFPODAXIME [Concomitant]
  5. ZOFRAN [Concomitant]
  6. MIRALAX [Concomitant]

REACTIONS (2)
  - VARICELLA [None]
  - EXPOSURE TO COMMUNICABLE DISEASE [None]
